FAERS Safety Report 15747272 (Version 1)
Quarter: 2018Q4

REPORT INFORMATION
  Report Type: Spontaneous
  Country: US (occurrence: US)
  Receive Date: 20181220
  Receipt Date: 20181220
  Transmission Date: 20190205
  Serious: No
  Sender: FDA-Public Use
  Company Number: US-AVADEL SPECIALTY PHARMACEUTICALS, LLC-2018AVA00388

PATIENT
  Age: 96 Year
  Sex: Male
  Weight: 58.96 kg

DRUGS (9)
  1. MELOXICAM. [Concomitant]
     Active Substance: MELOXICAM
     Dosage: UNK, 1X/DAY
     Route: 048
  2. TRAMADOL. [Concomitant]
     Active Substance: TRAMADOL
     Dosage: 50 MG, 1X/DAY
     Route: 048
  3. CITRUCEL [Concomitant]
     Active Substance: METHYLCELLULOSE (4000 MPA.S)
     Dosage: UNK, 1X/DAY
     Route: 048
  4. PANTOPRAZOLE [Concomitant]
     Active Substance: PANTOPRAZOLE
     Dosage: 40 MG, 1X/DAY
     Route: 048
  5. VITAMIN D [Concomitant]
     Active Substance: CHOLECALCIFEROL
     Dosage: 2000 UNK, 1X/DAY
     Route: 048
  6. ZOLPIDEM [Concomitant]
     Active Substance: ZOLPIDEM\ZOLPIDEM TARTRATE
     Dosage: 3 MG, 1X/DAY
     Route: 048
  7. NOCTIVA [Suspect]
     Active Substance: DESMOPRESSIN ACETATE
     Dosage: 0.83 ?G, 1X/DAY AT NIGHT
     Route: 045
     Dates: start: 20180904, end: 20180928
  8. LISINOPRIL. [Concomitant]
     Active Substance: LISINOPRIL
     Dosage: UNK, 1X/DAY
     Route: 048
  9. SIMVASTATIN. [Concomitant]
     Active Substance: SIMVASTATIN
     Dosage: 20 MG, 1X/DAY
     Route: 048

REACTIONS (4)
  - Mental impairment [Recovered/Resolved]
  - Hallucination, visual [Recovered/Resolved]
  - Depression [Recovered/Resolved]
  - Drug effect decreased [Recovered/Resolved]

NARRATIVE: CASE EVENT DATE: 201809
